FAERS Safety Report 23080423 (Version 3)
Quarter: 2023Q4

REPORT INFORMATION
  Report Type: Spontaneous
  Country: JP (occurrence: JP)
  Receive Date: 20231018
  Receipt Date: 20231204
  Transmission Date: 20240110
  Serious: Yes (Hospitalization, Other)
  Sender: FDA-Public Use
  Company Number: JP-NEUROCRINE BIOSCIENCES INC.-2023NBI05061

PATIENT
  Age: 44 Year
  Sex: Female

DRUGS (20)
  1. VALBENAZINE [Suspect]
     Active Substance: VALBENAZINE
     Indication: Tardive dyskinesia
     Dosage: 40 MILLIGRAM, QD
     Route: 048
     Dates: start: 20230518, end: 20230520
  2. BIPERIDEN HYDROCHLORIDE [Suspect]
     Active Substance: BIPERIDEN HYDROCHLORIDE
     Indication: Akathisia
     Dosage: 3 MILLIGRAM, QD
     Route: 048
     Dates: start: 20190520
  3. BIPERIDEN HYDROCHLORIDE [Suspect]
     Active Substance: BIPERIDEN HYDROCHLORIDE
     Dosage: 2 MILLIGRAM, QD
     Route: 048
     Dates: end: 20230110
  4. BIPERIDEN HYDROCHLORIDE [Suspect]
     Active Substance: BIPERIDEN HYDROCHLORIDE
     Dosage: 6 MILLIGRAM
     Route: 048
  5. BIPERIDEN HYDROCHLORIDE [Suspect]
     Active Substance: BIPERIDEN HYDROCHLORIDE
     Dosage: UNK
     Route: 048
     Dates: start: 2020
  6. BIPERIDEN HYDROCHLORIDE [Suspect]
     Active Substance: BIPERIDEN HYDROCHLORIDE
     Dosage: 6 MILLIGRAM
     Route: 048
  7. HALOPERIDOL [Suspect]
     Active Substance: HALOPERIDOL
     Indication: Schizophrenia
     Dosage: 4.5 MILLIGRAM, QD
     Route: 048
     Dates: start: 20230302
  8. HALOPERIDOL [Suspect]
     Active Substance: HALOPERIDOL
     Dosage: 3.25 MILLIGRAM, QD
     Route: 048
     Dates: start: 20230420, end: 20230520
  9. HALOPERIDOL [Suspect]
     Active Substance: HALOPERIDOL
     Dosage: 0.75 MILLIGRAM, QD
     Route: 048
  10. RISPERIDONE [Concomitant]
     Active Substance: RISPERIDONE
     Dosage: UNK
     Dates: end: 20230620
  11. CALONAL [Concomitant]
     Active Substance: ACETAMINOPHEN
     Dosage: UNK
     Dates: end: 20230620
  12. SODIUM PICOSULFATE [Concomitant]
     Active Substance: SODIUM PICOSULFATE
     Dosage: UNK
     Dates: end: 20230620
  13. ESZOPICLONE [Concomitant]
     Active Substance: ESZOPICLONE
     Indication: Insomnia
     Dosage: UNK
     Dates: start: 20230508, end: 20230520
  14. PRAMIPEXOLE [Concomitant]
     Active Substance: PRAMIPEXOLE
     Indication: Akathisia
  15. DIAZEPAM [Concomitant]
     Active Substance: DIAZEPAM
     Indication: Akathisia
     Dosage: UNK
     Dates: start: 20230302, end: 20230520
  16. DAYVIGO [Concomitant]
     Active Substance: LEMBOREXANT
     Indication: Insomnia
     Dosage: UNK
     Dates: end: 20230520
  17. REXULTI [Concomitant]
     Active Substance: BREXPIPRAZOLE
  18. ABILIFY [Concomitant]
     Active Substance: ARIPIPRAZOLE
  19. CLONAZEPAM [Concomitant]
     Active Substance: CLONAZEPAM
  20. VALPROATE SODIUM [Concomitant]
     Active Substance: VALPROATE SODIUM

REACTIONS (3)
  - Schizophrenia [Recovered/Resolved]
  - Akathisia [Recovering/Resolving]
  - Restless legs syndrome [Recovering/Resolving]

NARRATIVE: CASE EVENT DATE: 20230518
